FAERS Safety Report 4454618-0 (Version None)
Quarter: 2004Q3

REPORT INFORMATION
  Report Type: 
  Country: None (occurrence: None)
  Receive Date: 20040826
  Receipt Date: 20040701
  Transmission Date: 20050211
  Serious: No
  Sender: FDA-Public Use
  Company Number: WAES 0407USA00214

PATIENT
  Age: 44 Year
  Sex: Female

DRUGS (3)
  1. ZETIA [Suspect]
     Indication: HYPERCHOLESTEROLAEMIA
     Dosage: 10 MG/DAILY/PO
     Route: 048
     Dates: start: 20040422, end: 20040624
  2. ESTRATEST [Concomitant]
  3. SYNTHROID [Concomitant]

REACTIONS (3)
  - INSOMNIA [None]
  - MUSCLE TWITCHING [None]
  - MYALGIA [None]
